FAERS Safety Report 7385006-5 (Version None)
Quarter: 2011Q1

REPORT INFORMATION
  Report Type: 
  Country: None (occurrence: None)
  Receive Date: 20110330
  Receipt Date: 20110323
  Transmission Date: 20110831
  Serious: Yes (Other)
  Sender: FDA-Public Use
  Company Number: SG-BAYER-2011-025562

PATIENT
  Age: 42 Year
  Sex: Male

DRUGS (1)
  1. ASPIRIN DIRECT [Suspect]

REACTIONS (1)
  - ANGIOEDEMA [None]
